FAERS Safety Report 5422216-8 (Version None)
Quarter: 2007Q3

REPORT INFORMATION
  Report Type: 
  Country: None (occurrence: None)
  Receive Date: 20070822
  Receipt Date: 20070813
  Transmission Date: 20080115
  Serious: Yes (Hospitalization)
  Sender: FDA-Public Use
  Company Number: US-AMGEN-STX238602

PATIENT
  Sex: Female

DRUGS (3)
  1. ENBREL [Suspect]
     Indication: RHEUMATOID ARTHRITIS
     Route: 058
     Dates: start: 19981201
  2. ARAVA [Concomitant]
     Route: 048
     Dates: start: 20010101
  3. PLAQUENIL [Concomitant]
     Route: 048
     Dates: start: 20070401

REACTIONS (2)
  - MULTIPLE FRACTURES [None]
  - ROAD TRAFFIC ACCIDENT [None]
